FAERS Safety Report 19306732 (Version 2)
Quarter: 2021Q2

REPORT INFORMATION
  Report Type: Spontaneous
  Country: US (occurrence: US)
  Receive Date: 20210525
  Receipt Date: 20210607
  Transmission Date: 20210717
  Serious: No
  Sender: FDA-Public Use
  Company Number: US-TEVA-2021-US-1913840

PATIENT
  Age: 39 Year
  Sex: Female
  Weight: 89.81 kg

DRUGS (2)
  1. AJOVY [Suspect]
     Active Substance: FREMANEZUMAB-VFRM
  2. AJOVY [Suspect]
     Active Substance: FREMANEZUMAB-VFRM
     Indication: MIGRAINE
     Route: 065
     Dates: start: 20210512

REACTIONS (4)
  - Insomnia [Unknown]
  - Headache [Unknown]
  - Nightmare [Unknown]
  - Middle insomnia [Unknown]

NARRATIVE: CASE EVENT DATE: 20210512
